FAERS Safety Report 19962616 (Version 3)
Quarter: 2022Q3

REPORT INFORMATION
  Report Type: Spontaneous
  Country: PL (occurrence: None)
  Receive Date: 20211018
  Receipt Date: 20220912
  Transmission Date: 20221027
  Serious: Yes (Other)
  Sender: FDA-Public Use
  Company Number: PL-ROCHE-2932693

PATIENT
  Sex: Male

DRUGS (2)
  1. HEMLIBRA [Suspect]
     Active Substance: EMICIZUMAB-KXWH
     Indication: Factor VIII deficiency
     Dosage: 3MG/KG EVERY TWO WEEKS(MAINTENANCE DOSE) AT DOSE OF 40 MG/KG EVERY 2 WEEKS. IN THE FIRST TWO MONTHS
     Route: 065
     Dates: start: 20220708
  2. HEMLIBRA [Suspect]
     Active Substance: EMICIZUMAB-KXWH
     Route: 065
     Dates: start: 20220708

REACTIONS (1)
  - Haematoma [Unknown]
